FAERS Safety Report 5798543-1 (Version None)
Quarter: 2008Q3

REPORT INFORMATION
  Report Type: 
  Country: None (occurrence: None)
  Receive Date: 20080701
  Receipt Date: 20080701
  Transmission Date: 20090109
  Serious: Yes (Hospitalization)
  Sender: FDA-Public Use
  Company Number: None

PATIENT
  Age: 62 Year
  Sex: Male
  Weight: 89 kg

DRUGS (1)
  1. SULFAMETHOXAZOLE AND TRIMETHOPRIM [Suspect]
     Dosage: 800/160 MG BID PO
     Route: 048
     Dates: start: 20080501, end: 20080516

REACTIONS (5)
  - CHILLS [None]
  - LIP PAIN [None]
  - MUCOCUTANEOUS RASH [None]
  - PYREXIA [None]
  - STEVENS-JOHNSON SYNDROME [None]
